FAERS Safety Report 8573138-5 (Version None)
Quarter: 2012Q3

REPORT INFORMATION
  Report Type: 
  Country: None (occurrence: None)
  Receive Date: 20120806
  Receipt Date: 20120723
  Transmission Date: 20120928
  Serious: Yes (Life-Threatening, Hospitalization, Other)
  Sender: FDA-Public Use
  Company Number: US-ACTELION-A-NJ2010-41396

PATIENT
  Age: 79 Year
  Sex: Female

DRUGS (5)
  1. ALDACTONE [Concomitant]
  2. TRACLEER [Suspect]
     Indication: PULMONARY ARTERIAL HYPERTENSION
     Dosage: UNK
     Route: 048
     Dates: start: 20040605
  3. COUMADIN [Suspect]
  4. COZAAR [Concomitant]
  5. LOVENOX [Concomitant]

REACTIONS (14)
  - ANAEMIA [None]
  - ASTHENIA [None]
  - TOXICITY TO VARIOUS AGENTS [None]
  - TRANSFUSION [None]
  - MENTAL STATUS CHANGES [None]
  - HAEMORRHAGE [None]
  - RENAL DISORDER [None]
  - NECK PAIN [None]
  - NAUSEA [None]
  - INTERNATIONAL NORMALISED RATIO INCREASED [None]
  - DEHYDRATION [None]
  - OSTEOARTHRITIS [None]
  - MALAISE [None]
  - RENAL FAILURE [None]
